FAERS Safety Report 25036012 (Version 1)
Quarter: 2025Q1

REPORT INFORMATION
  Report Type: Spontaneous
  Country: US (occurrence: None)
  Receive Date: 20250303
  Receipt Date: 20250303
  Transmission Date: 20250409
  Serious: Yes (Hospitalization, Disabling, Other)
  Sender: FDA-CTU
  Company Number: None

PATIENT
  Age: 60 Year
  Sex: Female
  Weight: 38.25 kg

DRUGS (3)
  1. ELIQUIS [Suspect]
     Active Substance: APIXABAN
     Indication: Thrombosis prophylaxis
     Dosage: 2 TABLETS TWICE A DAY ORAL
     Route: 048
     Dates: start: 20250211, end: 20250220
  2. dilaziam [Concomitant]
  3. AMLODIPINE [Concomitant]
     Active Substance: AMLODIPINE BESYLATE

REACTIONS (4)
  - Muscle spasms [None]
  - Mobility decreased [None]
  - Pain in extremity [None]
  - Asthenia [None]

NARRATIVE: CASE EVENT DATE: 20250211
